FAERS Safety Report 10469372 (Version 2)
Quarter: 2014Q4

REPORT INFORMATION
  Report Type: Report from Study
  Country: US (occurrence: US)
  Receive Date: 20140923
  Receipt Date: 20141008
  Transmission Date: 20150528
  Serious: Yes (Hospitalization)
  Sender: FDA-Public Use
  Company Number: US-AMGEN-USASP2014071605

PATIENT
  Age: 85 Year
  Sex: Male
  Weight: 48.07 kg

DRUGS (14)
  1. EMLA                               /00675501/ [Concomitant]
     Dosage: 30GMS, APPLY TO SKIN 1 HR BEFORE VISIT
     Route: 061
  2. GABAPENTIN. [Concomitant]
     Active Substance: GABAPENTIN
     Dosage: 600 MG (1TABLET), TID
     Route: 048
  3. LACTINEX                           /00079701/ [Concomitant]
     Dosage: 2 TAB(1MILLION CELL), TID
     Route: 048
  4. LEVSIN/SL [Concomitant]
     Dosage: 0.125 MG, AS NECESSARY
     Route: 060
  5. ZOFRAN                             /00955301/ [Concomitant]
     Active Substance: ONDANSETRON HYDROCHLORIDE
     Indication: NAUSEA
     Dosage: 8 MG, EVERY 8-12 HOURS AS NEEDED
     Route: 048
  6. METHYLCELLULOSE [Concomitant]
     Active Substance: METHYLCELLULOSES
     Dosage: 1 SCOOP, QD
     Route: 048
  7. SIMETHICONE [Concomitant]
     Active Substance: DIMETHICONE\SILICON DIOXIDE\SIMETHICONE
     Indication: ABDOMINAL DISTENSION
     Dosage: 125 MG, AFTER MEALS AND AT BEDTIME
     Route: 048
  8. FLUDROCORTISONE [Concomitant]
     Active Substance: FLUDROCORTISONE
     Dosage: 0.1 MG(0.5 TABLET), EVERY OTHER DAY
     Route: 048
  9. RECLAST [Concomitant]
     Active Substance: ZOLEDRONIC ACID
     Dosage: 5 MG/100ML, ONCE YEARLY
     Route: 042
  10. REMERON [Concomitant]
     Active Substance: MIRTAZAPINE
     Dosage: 15 MG, QD
     Route: 048
  11. DILAUDID [Concomitant]
     Active Substance: HYDROMORPHONE HYDROCHLORIDE
     Dosage: 2 MG, 1-2 TABLET (Q4-6 HRS) AS NECESSARY
     Route: 048
  12. FENTANYL. [Concomitant]
     Active Substance: FENTANYL
     Dosage: 50 MCG/HR, 1 PATCH EVERY 72 HOURS
     Route: 062
  13. PROLIA [Suspect]
     Active Substance: DENOSUMAB
     Indication: OSTEOPOROSIS
     Dosage: 60 MG, Q6MO
     Route: 058
     Dates: start: 20140428
  14. BISACODYL. [Concomitant]
     Active Substance: BISACODYL
     Dosage: 10 MG, AS NECESSARY
     Route: 054

REACTIONS (7)
  - Unresponsive to stimuli [Unknown]
  - Urinary tract infection [Unknown]
  - Hypocalcaemia [Recovered/Resolved]
  - Confusional state [Unknown]
  - Dehydration [Unknown]
  - Asthenia [Unknown]
  - Acute kidney injury [Unknown]

NARRATIVE: CASE EVENT DATE: 20140723
